FAERS Safety Report 6514492-5 (Version None)
Quarter: 2009Q4

REPORT INFORMATION
  Report Type: 
  Country: None (occurrence: None)
  Receive Date: 20091223
  Receipt Date: 20091217
  Transmission Date: 20100525
  Serious: Yes (Life-Threatening, Hospitalization)
  Sender: FDA-Public Use
  Company Number: US-ELI_LILLY_AND_COMPANY-US200912004280

PATIENT
  Sex: Female

DRUGS (1)
  1. FORTEO [Suspect]
     Indication: OSTEOPOROSIS
     Dosage: UNK, UNKNOWN
     Dates: start: 20090601, end: 20091113

REACTIONS (7)
  - ARRHYTHMIA [None]
  - DYSPNOEA [None]
  - HAEMATOCHEZIA [None]
  - LUNG DISORDER [None]
  - MALAISE [None]
  - POLYP COLORECTAL [None]
  - ULCER [None]
